FAERS Safety Report 6564840-5 (Version None)
Quarter: 2010Q1

REPORT INFORMATION
  Report Type: 
  Country: None (occurrence: None)
  Receive Date: 20100201
  Receipt Date: 20100122
  Transmission Date: 20100710
  Serious: Yes (Hospitalization)
  Sender: FDA-Public Use
  Company Number: JP-PFIZER INC-2010004101

PATIENT
  Age: 87 Year
  Sex: Female

DRUGS (4)
  1. NORVASC [Suspect]
     Indication: HYPERTENSION
     Dosage: 5MG/DAY
     Route: 048
     Dates: start: 20040930
  2. CELECOX [Suspect]
     Indication: BACK PAIN
     Dosage: UNK, 2X/DAY
     Route: 048
  3. MICARDIS [Concomitant]
     Dosage: UNK
     Route: 048
     Dates: start: 20031109
  4. LAFUTIDINE [Concomitant]
     Dosage: UNK
     Route: 048
     Dates: start: 20040123

REACTIONS (2)
  - DYSPEPSIA [None]
  - INTESTINAL OBSTRUCTION [None]
